FAERS Safety Report 8873622 (Version 1)
Quarter: 2012Q4

REPORT INFORMATION
  Report Type: 
  Country: US (occurrence: US)
  Receive Date: 20121026
  Receipt Date: 20121026
  Transmission Date: 20130627
  Serious: No
  Sender: FDA-Public Use
  Company Number: US-AMGEN-USASP2012045740

PATIENT
  Age: 76 Year
  Sex: Female
  Weight: 75.74 kg

DRUGS (14)
  1. ENBREL [Suspect]
     Indication: PRODUCT USED FOR UNKNOWN INDICATION
     Dosage: 50 mg, qwk
     Route: 058
  2. PANTOPRAZOLE [Concomitant]
     Dosage: 20 mg, UNK
  3. FUROSEMIDE [Concomitant]
     Dosage: 20 UNK, UNK
  4. PREDNISONE [Concomitant]
     Dosage: 1 mg, UNK
  5. TRAMADOLE [Concomitant]
     Dosage: 50 mg, UNK
  6. PRAVASTATIN [Concomitant]
     Dosage: 10 mg, UNK
  7. ATENOLOL [Concomitant]
     Dosage: 25 mg, UNK
  8. METFORMIN [Concomitant]
     Dosage: 500 mg, UNK
  9. LISINOPRIL [Concomitant]
     Dosage: 2.5 mg, UNK
  10. GLYBURIDE [Concomitant]
     Dosage: 1.25 mg, UNK
  11. ASPIRIN [Concomitant]
     Dosage: 325 mg, UNK
  12. HYDROXYZINE HCL [Concomitant]
     Dosage: 10 mg, UNK
  13. PLAVIX [Concomitant]
     Dosage: 75 mg, UNK
  14. STOOL SOFTENER [Concomitant]
     Dosage: 100 mg, UNK

REACTIONS (1)
  - Injection site bruising [Unknown]
